FAERS Safety Report 14620241 (Version 2)
Quarter: 2018Q1

REPORT INFORMATION
  Report Type: Spontaneous
  Country: US (occurrence: US)
  Receive Date: 20180309
  Receipt Date: 20180326
  Transmission Date: 20180509
  Serious: Yes (Death)
  Sender: FDA-Public Use
  Company Number: US-UNITED THERAPEUTICS-UNT-2018-003036

PATIENT
  Age: 59 Year
  Sex: Female
  Weight: 73.16 kg

DRUGS (1)
  1. REMODULIN [Suspect]
     Active Substance: TREPROSTINIL
     Indication: PULMONARY ARTERIAL HYPERTENSION
     Dosage: 0.00125 ?G/KG, CONTINUING
     Route: 058
     Dates: start: 20180302

REACTIONS (7)
  - Diarrhoea [Unknown]
  - Infusion site pain [Unknown]
  - Blood pressure decreased [Recovered/Resolved]
  - Oedema peripheral [Unknown]
  - Death [Fatal]
  - Dizziness [Recovered/Resolved]
  - Localised oedema [Unknown]

NARRATIVE: CASE EVENT DATE: 20180302
